FAERS Safety Report 24638456 (Version 1)
Quarter: 2024Q4

REPORT INFORMATION
  Report Type: Spontaneous
  Country: US (occurrence: None)
  Receive Date: 20241119
  Receipt Date: 20241119
  Transmission Date: 20250115
  Serious: Yes (Hospitalization)
  Sender: Public
  Company Number: None

PATIENT
  Age: 77 Year
  Sex: Male
  Weight: 80 kg

DRUGS (2)
  1. DABIGATRAN ETEXILATE [Suspect]
     Active Substance: DABIGATRAN ETEXILATE
     Indication: Factor V Leiden mutation
     Dosage: FREQUENCY : TWICE A DAY;?
     Route: 048
     Dates: start: 20230911
  2. DABIGATRAN ETEXILATE [Suspect]
     Active Substance: DABIGATRAN ETEXILATE
     Indication: Deep vein thrombosis

REACTIONS (2)
  - Deep vein thrombosis [None]
  - Symptom recurrence [None]

NARRATIVE: CASE EVENT DATE: 20240920
